FAERS Safety Report 5704205-9 (Version None)
Quarter: 2008Q2

REPORT INFORMATION
  Report Type: 
  Country: None (occurrence: None)
  Receive Date: 20080409
  Receipt Date: 20080328
  Transmission Date: 20081010
  Serious: Yes (Death)
  Sender: FDA-Public Use
  Company Number: 100#08#2008-01781

PATIENT
  Age: 21 Year
  Sex: Female

DRUGS (3)
  1. METHOTREXATE [Suspect]
     Dosage: 1 MG/KG (55 MG); INTRA-MUSCULAR
     Route: 030
  2. PROPYLTHIOURACIL [Concomitant]
  3. INDERAL [Concomitant]

REACTIONS (10)
  - ACUTE RESPIRATORY FAILURE [None]
  - ANAEMIA [None]
  - DRUG TOXICITY [None]
  - HAEMORRHAGE [None]
  - HYPOXIA [None]
  - LUNG INFILTRATION [None]
  - PULMONARY HAEMORRHAGE [None]
  - RESPIRATORY ACIDOSIS [None]
  - TACHYCARDIA [None]
  - TUMOUR LYSIS SYNDROME [None]
